FAERS Safety Report 9129832 (Version 2)
Quarter: 2013Q4

REPORT INFORMATION
  Report Type: Spontaneous
  Country: US (occurrence: US)
  Receive Date: 20130228
  Receipt Date: 20131227
  Transmission Date: 20140711
  Serious: Yes (Hospitalization)
  Sender: FDA-Public Use
  Company Number: US-B.I. PHARMACEUTICALS,INC./RIDGEFIELD-2013-BI-04953BP

PATIENT
  Age: 66 Year
  Sex: Male
  Weight: 93.44 kg

DRUGS (5)
  1. PRADAXA [Suspect]
     Indication: ANTICOAGULANT THERAPY
     Dosage: 300 MG
     Route: 048
     Dates: start: 20110208, end: 20110220
  2. PRADAXA [Suspect]
     Indication: ATRIAL FIBRILLATION
  3. LISINOPRIL [Concomitant]
     Dosage: 20 MG
     Route: 048
  4. FLECAINIDE [Concomitant]
     Dosage: 200 MG
  5. RITALIN [Concomitant]
     Dosage: 10 MG

REACTIONS (4)
  - Haemorrhage intracranial [Unknown]
  - Haematoma [Unknown]
  - Cerebrovascular accident [Unknown]
  - Coagulopathy [Unknown]
